FAERS Safety Report 15677969 (Version 1)
Quarter: 2018Q4

REPORT INFORMATION
  Report Type: Spontaneous
  Country: AU (occurrence: AU)
  Receive Date: 20181130
  Receipt Date: 20181130
  Transmission Date: 20190205
  Serious: Yes (Other)
  Sender: FDA-Public Use
  Company Number: AU-BAXTER-2018BAX029147

PATIENT
  Age: 61 Year

DRUGS (7)
  1. SODIUM CHLORIDE (VIAFLO) 1000ML [Suspect]
     Active Substance: SODIUM CHLORIDE
     Indication: MEDICATION DILUTION
     Dosage: NINTH DOSE OF PACLITAXEL COMPOUNDED WITH SODIUM CHLORIDE 0.9% (VIAFLO)
     Route: 065
     Dates: start: 20181004
  2. SODIUM CHLORIDE (VIAFLO) 1000ML [Suspect]
     Active Substance: SODIUM CHLORIDE
     Dosage: TENTH DOSE OF PACLITAXEL COMPOUNDED WITH SODIUM CHLORIDE 0.9% (VIAFLO)
     Route: 065
     Dates: start: 20181011
  3. PACLITAXEL. [Suspect]
     Active Substance: PACLITAXEL
     Dosage: TENTH DOSE; COMPOUNDED WITH SODIUM CHLORIDE 0.9% (VIAFLO)
     Route: 065
     Dates: start: 20181011
  4. PACLITAXEL. [Suspect]
     Active Substance: PACLITAXEL
     Indication: PRODUCT USED FOR UNKNOWN INDICATION
     Dosage: EIGHT DOSES (FURTHER NOT SPECIFIED)
     Route: 065
  5. PACLITAXEL. [Suspect]
     Active Substance: PACLITAXEL
     Dosage: NINTH DOSE; COMPOUNDED WITH SODIUM CHLORIDE 0.9% (VIAFLO)
     Route: 065
     Dates: start: 20181004
  6. SODIUM CHLORIDE (VIAFLO) 1000ML [Suspect]
     Active Substance: SODIUM CHLORIDE
     Dosage: ELEVENTH DOSE OF PACLITAXEL COMPOUNDED WITH SODIUM CHLORIDE 0.9% (VIAFLO)
     Route: 065
     Dates: start: 20181018, end: 20181018
  7. PACLITAXEL. [Suspect]
     Active Substance: PACLITAXEL
     Dosage: ELEVENTH DOSE; COMPOUNDED WITH SODIUM CHLORIDE 0.9% (VIAFLO)
     Route: 065
     Dates: start: 20181018, end: 20181018

REACTIONS (6)
  - Back pain [Unknown]
  - Paraesthesia oral [Unknown]
  - Erythema [Recovered/Resolved]
  - Chest discomfort [Recovered/Resolved]
  - Flushing [Recovered/Resolved]
  - Dyspnoea [Unknown]

NARRATIVE: CASE EVENT DATE: 20181004
